FAERS Safety Report 26200724 (Version 1)
Quarter: 2025Q4

REPORT INFORMATION
  Report Type: Spontaneous
  Country: EU (occurrence: EU)
  Receive Date: 20251226
  Receipt Date: 20251226
  Transmission Date: 20260118
  Serious: Yes (Hospitalization)
  Sender: TEVA
  Company Number: None

PATIENT
  Age: 72 Year
  Sex: Female
  Weight: 62 kg

DRUGS (1)
  1. LETROZOLE [Suspect]
     Active Substance: LETROZOLE
     Indication: Cancer hormonal therapy
     Dosage: 2.5 MG/DAY
     Route: 048
     Dates: start: 202503, end: 202510

REACTIONS (5)
  - Interstitial lung disease [Recovering/Resolving]
  - Asthenia [Recovering/Resolving]
  - Productive cough [Recovering/Resolving]
  - Weight decreased [Recovering/Resolving]
  - Dyspnoea exertional [Recovering/Resolving]

NARRATIVE: CASE EVENT DATE: 20250904
